FAERS Safety Report 12439671 (Version 1)
Quarter: 2016Q2

REPORT INFORMATION
  Report Type: Spontaneous
  Country: US (occurrence: US)
  Receive Date: 20160606
  Receipt Date: 20160606
  Transmission Date: 20160815
  Serious: No
  Sender: FDA-Public Use
  Company Number: US-ACTAVIS-2015-22863

PATIENT
  Age: 52 Year
  Sex: Female

DRUGS (1)
  1. PROGESTERONE (IN SESAME OIL) (ACTAVIS LABORATORIES UT, INC.) [Suspect]
     Active Substance: PROGESTERONE
     Indication: PRODUCT USED FOR UNKNOWN INDICATION
     Dosage: UNK, UNKNOWN
     Route: 065
     Dates: start: 2012

REACTIONS (2)
  - Blood testosterone decreased [Unknown]
  - Blood oestrogen decreased [Unknown]
